FAERS Safety Report 17022919 (Version 1)
Quarter: 2019Q4

REPORT INFORMATION
  Report Type: Spontaneous
  Country: IR (occurrence: IR)
  Receive Date: 20191112
  Receipt Date: 20191112
  Transmission Date: 20200122
  Serious: Yes (Death, Other)
  Sender: FDA-Public Use
  Company Number: IR-SHIRE-IR201938321

PATIENT

DRUGS (3)
  1. NOVOSEVEN [Concomitant]
     Active Substance: COAGULATION FACTOR VIIA RECOMBINANT HUMAN
     Indication: PROPHYLAXIS
  2. FRESH FROZEN PLASMA [Concomitant]
     Active Substance: HUMAN PLASMA
     Indication: PROPHYLAXIS
  3. FEIBA NF [Suspect]
     Active Substance: ANTI-INHIBITOR COAGULANT COMPLEX
     Indication: PROPHYLAXIS
     Dosage: 75 INTERNATIONAL UNIT/KILOGRAM, 3X A WEEK
     Route: 065

REACTIONS (1)
  - Haemorrhage intracranial [Fatal]
